FAERS Safety Report 7084668-X (Version None)
Quarter: 2010Q4

REPORT INFORMATION
  Report Type: 
  Country: None (occurrence: None)
  Receive Date: 20101104
  Receipt Date: 20101028
  Transmission Date: 20110411
  Serious: Yes (Other)
  Sender: FDA-Public Use
  Company Number: US-GILEAD-2010-0033067

PATIENT
  Age: 68 Year
  Sex: Female
  Weight: 62.198 kg

DRUGS (27)
  1. LETAIRIS [Suspect]
     Indication: PULMONARY ARTERIAL HYPERTENSION
     Route: 048
     Dates: start: 20071107
  2. REVATIO [Concomitant]
     Dates: start: 20060911
  3. POTASSIUM CHLORIDE [Concomitant]
  4. ASPIRIN [Concomitant]
  5. PRENISOL 1% EYE DROPS [Concomitant]
  6. LEVOTHYROXINE [Concomitant]
  7. TAMBOCOR [Concomitant]
  8. PROTONIX [Concomitant]
  9. RANITIDINE [Concomitant]
  10. ACETAMINOPHEN [Concomitant]
  11. PATANOL 0.1% EYE DROPS [Concomitant]
  12. SPIRONOLACTONE [Concomitant]
  13. HYDROCODONE BITARTRATE AND ACETAMINOPHEN [Concomitant]
  14. DILTIA [Concomitant]
  15. CIPRO [Concomitant]
  16. CENTRUM SILVER [Concomitant]
  17. LASIX [Concomitant]
  18. COLCHICINE [Concomitant]
  19. ATENOLOL [Concomitant]
  20. ALLOPURINOL [Concomitant]
  21. MINOXIDIL [Concomitant]
  22. ATROVENT [Concomitant]
  23. FERROUS SULFATE [Concomitant]
  24. ARANESP [Concomitant]
  25. CALCIUM +D [Concomitant]
  26. TIAZAC [Concomitant]
  27. NATURAL TEARS [Concomitant]

REACTIONS (1)
  - SYNCOPE [None]
